FAERS Safety Report 15625738 (Version 3)
Quarter: 2019Q2

REPORT INFORMATION
  Report Type: Report from Study
  Country: IL (occurrence: IL)
  Receive Date: 20181116
  Receipt Date: 20190615
  Transmission Date: 20190711
  Serious: Yes (Other)
  Sender: FDA-Public Use
  Company Number: IL-AMGEN-ISRSL2018161277

PATIENT
  Age: 80 Year
  Sex: Female

DRUGS (1)
  1. PROLIA [Suspect]
     Active Substance: DENOSUMAB
     Indication: PRODUCT USED FOR UNKNOWN INDICATION
     Dosage: UNK
     Route: 065
     Dates: start: 20180429

REACTIONS (6)
  - Gait disturbance [Unknown]
  - Asthenia [Recovered/Resolved]
  - Renal impairment [Unknown]
  - Pain [Unknown]
  - Myalgia [Recovered/Resolved]
  - Muscle disorder [Unknown]

NARRATIVE: CASE EVENT DATE: 2018
